FAERS Safety Report 7879668-3 (Version None)
Quarter: 2011Q4

REPORT INFORMATION
  Report Type: 
  Country: None (occurrence: None)
  Receive Date: 20111101
  Receipt Date: 20111031
  Transmission Date: 20120403
  Serious: Yes (Death, Hospitalization)
  Sender: FDA-Public Use
  Company Number: US-GLAXOSMITHKLINE-B0758180A

PATIENT
  Age: 50 Year
  Sex: Female

DRUGS (2)
  1. METOPROLOL TARTRATE [Suspect]
     Dosage: 50MG PER DAY
  2. BUPROPION HCL [Suspect]
     Dosage: 1200MG PER DAY

REACTIONS (4)
  - CARDIAC ARREST [None]
  - INTENTIONAL OVERDOSE [None]
  - CARDIOGENIC SHOCK [None]
  - MULTI-ORGAN FAILURE [None]
